FAERS Safety Report 5030902-7 (Version None)
Quarter: 2006Q2

REPORT INFORMATION
  Report Type: 
  Country: None (occurrence: None)
  Receive Date: 20060619
  Receipt Date: 20060608
  Transmission Date: 20061013
  Serious: Yes (Hospitalization)
  Sender: FDA-Public Use
  Company Number: 2006-01301

PATIENT
  Age: 71 Year
  Sex: Male
  Weight: 61 kg

DRUGS (2)
  1. VELCADE [Suspect]
     Indication: MULTIPLE MYELOMA
     Dates: start: 20060425, end: 20060523
  2. DOXIL [Suspect]
     Indication: MULTIPLE MYELOMA
     Dates: start: 20060428, end: 20060523

REACTIONS (4)
  - CELLULITIS [None]
  - EYE INFECTION [None]
  - HERPES ZOSTER [None]
  - TONGUE DISORDER [None]
